FAERS Safety Report 10496724 (Version 1)
Quarter: 2014Q4

REPORT INFORMATION
  Report Type: Spontaneous
  Country: US (occurrence: US)
  Receive Date: 20141006
  Receipt Date: 20141006
  Transmission Date: 20150528
  Serious: Yes (Other)
  Sender: FDA-Public Use
  Company Number: US-AMGEN-USASP2014075271

PATIENT
  Age: 51 Year
  Sex: Female

DRUGS (3)
  1. ETANERCEPT [Suspect]
     Active Substance: ETANERCEPT
     Indication: RHEUMATOID ARTHRITIS
     Dosage: 50 MG, QWK
     Route: 065
  2. CELECOXIB. [Concomitant]
     Active Substance: CELECOXIB
     Dosage: 200 MG, AS NECESSARY
  3. ETANERCEPT [Suspect]
     Active Substance: ETANERCEPT
     Indication: INTERSTITIAL GRANULOMATOUS DERMATITIS

REACTIONS (3)
  - Off label use [Recovered/Resolved]
  - Arthralgia [Recovering/Resolving]
  - Interstitial granulomatous dermatitis [Recovered/Resolved]
